FAERS Safety Report 9180843 (Version 2)
Quarter: 2013Q3

REPORT INFORMATION
  Report Type: Spontaneous
  Country: NO (occurrence: None)
  Receive Date: 20130320
  Receipt Date: 20130910
  Transmission Date: 20140515
  Serious: Yes (Hospitalization, Other)
  Sender: FDA-Public Use
  Company Number: AUR-APL-2013-02378

PATIENT
  Age: 45 Year
  Sex: Female

DRUGS (4)
  1. RAMIPRIL (RAMIPRIL) [Suspect]
     Indication: HYPERTENSION
     Dosage: 1 D
     Route: 048
     Dates: start: 2011
  2. METFORMIN [Suspect]
     Indication: TYPE 2 DIABETES MELLITUS
     Dosage: 1 D
     Route: 048
     Dates: start: 201103, end: 20110606
  3. INSULATARD FLEXPEN [Suspect]
     Dosage: USED AS AGREED WITH
     Dates: start: 2011
  4. IMIGRAN [Suspect]
     Indication: MIGRAINE
     Route: 048
     Dates: start: 20110624

REACTIONS (3)
  - Abortion spontaneous [None]
  - Exposure during pregnancy [None]
  - Pregnancy [None]
